FAERS Safety Report 8193273 (Version 4)
Quarter: 2012Q4

REPORT INFORMATION
  Report Type: Spontaneous
  Country: US (occurrence: None)
  Receive Date: 20111012
  Receipt Date: 20120924
  Transmission Date: 20130627
  Serious: Yes (Hospitalization, Other)
  Sender: FDA-Public Use
  Company Number: AUR-APL-2011-03751

PATIENT
  Age: 58 Year
  Sex: Female

DRUGS (6)
  1. VENLAFAXINE [Suspect]
     Indication: PRODUCT USED FOR UNKNOWN INDICATION
  2. PRISTIQ EXTENDED RELEASE [Suspect]
     Indication: DEPRESSION
     Route: 048
     Dates: start: 2008
  3. PRISTIQ EXTENDED RELEASE [Suspect]
     Indication: DEPRESSION
     Dosage: 50 MG (50 MG, 1 IN 1 D), ORAL
     Route: 048
     Dates: start: 201012, end: 201012
  4. EFFEXOR [Suspect]
     Indication: PRODUCT USED FOR UNKNOWN INDICATION
  5. XANAX [Concomitant]
  6. ADDERALL [Concomitant]

REACTIONS (8)
  - NAUSEA [None]
  - DIARRHOEA [None]
  - FALL [None]
  - PERONEAL NERVE PALSY [None]
  - RHEUMATOID ARTHRITIS [None]
  - NEUROPATHY PERIPHERAL [None]
  - SPINAL COLUMN STENOSIS [None]
  - FEELING ABNORMAL [None]
